FAERS Safety Report 10071562 (Version 1)
Quarter: 2014Q2

REPORT INFORMATION
  Report Type: Not Available
  Country: FR (occurrence: FR)
  Receive Date: 20140410
  Receipt Date: 20140410
  Transmission Date: 20141212
  Serious: Yes (Hospitalization)
  Sender: FDA-Public Use
  Company Number: FR-RB-065745-14

PATIENT
  Age: 35 Year
  Sex: Male

DRUGS (4)
  1. SUBUTEX [Suspect]
     Indication: PRODUCT USED FOR UNKNOWN INDICATION
     Dosage: 3 TABLETS (UNKNOWN UNIT STRENGTH)
     Route: 048
     Dates: start: 20140302, end: 20140302
  2. LEXOMIL ROCHE [Suspect]
     Indication: PRODUCT USED FOR UNKNOWN INDICATION
     Dosage: SEVERAL TABLETS (UNKNOWN UNIT STRENGTH)
     Route: 048
     Dates: start: 20140302, end: 20140302
  3. TRANXENE [Concomitant]
     Indication: PRODUCT USED FOR UNKNOWN INDICATION
     Dosage: DOSING DETAILS UNKNOWN
     Route: 065
  4. LEXOMIL [Concomitant]
     Indication: PRODUCT USED FOR UNKNOWN INDICATION
     Dosage: DOSING DETAILS UNKNOWN
     Route: 065

REACTIONS (4)
  - Coma [Recovered/Resolved]
  - Respiratory acidosis [Unknown]
  - Toxicity to various agents [Recovered/Resolved]
  - Intentional product misuse [Unknown]
